FAERS Safety Report 14865209 (Version 1)
Quarter: 2018Q2

REPORT INFORMATION
  Report Type: Spontaneous
  Country: US (occurrence: US)
  Receive Date: 20180508
  Receipt Date: 20180508
  Transmission Date: 20180711
  Serious: No
  Sender: FDA-Public Use
  Company Number: US-009507513-1804USA011315

PATIENT
  Sex: Female

DRUGS (1)
  1. CUBICIN RF [Suspect]
     Active Substance: DAPTOMYCIN

REACTIONS (1)
  - Off label use [Unknown]
